FAERS Safety Report 5690777-X (Version None)
Quarter: 2008Q2

REPORT INFORMATION
  Report Type: 
  Country: None (occurrence: None)
  Receive Date: 20080401
  Receipt Date: 20080326
  Transmission Date: 20081010
  Serious: Yes (Death, Hospitalization)
  Sender: FDA-Public Use
  Company Number: A0717588A

PATIENT
  Age: 48 Year
  Sex: Female

DRUGS (4)
  1. EPIVIR [Suspect]
     Route: 048
     Dates: start: 20080314
  2. ZIAGEN [Suspect]
     Route: 048
     Dates: start: 20080314
  3. REYATAZ [Concomitant]
  4. UNSPECIFIED MEDICATION [Concomitant]
     Indication: LIPIDS INCREASED

REACTIONS (2)
  - IDIOPATHIC THROMBOCYTOPENIC PURPURA [None]
  - RENAL FAILURE [None]
